FAERS Safety Report 13954824 (Version 1)
Quarter: 2017Q3

REPORT INFORMATION
  Report Type: Spontaneous
  Country: US (occurrence: None)
  Receive Date: 20170911
  Receipt Date: 20170911
  Transmission Date: 20171128
  Serious: Yes (Hospitalization)
  Sender: FDA-Public Use
  Company Number: None

PATIENT
  Age: 64 Year
  Sex: Female

DRUGS (59)
  1. KLONOPIN [Concomitant]
     Active Substance: CLONAZEPAM
  2. FLUOXETINE [Concomitant]
     Active Substance: FLUOXETINE HYDROCHLORIDE
  3. MAXALT [Concomitant]
     Active Substance: RIZATRIPTAN BENZOATE
  4. CALAN SR [Concomitant]
     Active Substance: VERAPAMIL HYDROCHLORIDE
  5. LOTENSIL [Concomitant]
  6. AMANTADINE. [Concomitant]
     Active Substance: AMANTADINE HYDROCHLORIDE
  7. ADDERALL [Concomitant]
     Active Substance: AMPHETAMINE ASPARTATE\AMPHETAMINE SULFATE\DEXTROAMPHETAMINE SACCHARATE\DEXTROAMPHETAMINE SULFATE
  8. BENAZEPRIL [Concomitant]
     Active Substance: BENAZEPRIL HYDROCHLORIDE
  9. IBUPROFEN. [Concomitant]
     Active Substance: IBUPROFEN
  10. KLOR-CON [Concomitant]
     Active Substance: POTASSIUM CHLORIDE
  11. ASPIRIN. [Concomitant]
     Active Substance: ASPIRIN
  12. HUMALOG [Suspect]
     Active Substance: INSULIN LISPRO
  13. CLOBETASOL [Concomitant]
     Active Substance: CLOBETASOL
  14. VERELAN [Concomitant]
     Active Substance: VERAPAMIL HYDROCHLORIDE
  15. HYDROCHLOROT [Concomitant]
     Active Substance: HYDROCHLOROTHIAZIDE
  16. TRIAMT/HCTZ [Concomitant]
     Active Substance: HYDROCHLOROTHIAZIDE\TRIAMTERENE
  17. KEPPRA [Concomitant]
     Active Substance: LEVETIRACETAM
  18. PROZAC [Concomitant]
     Active Substance: FLUOXETINE HYDROCHLORIDE
  19. GLATOPA [Suspect]
     Active Substance: GLATIRAMER ACETATE
     Indication: MULTIPLE SCLEROSIS
     Route: 058
     Dates: start: 20150818
  20. HUMALOG MIX [Concomitant]
     Active Substance: INSULIN LISPRO
  21. PRANDIN [Suspect]
     Active Substance: REPAGLINIDE
  22. ALLOPURINOL. [Concomitant]
     Active Substance: ALLOPURINOL
  23. ZYRTEC [Suspect]
     Active Substance: CETIRIZINE HYDROCHLORIDE
  24. TOPAMAX [Concomitant]
     Active Substance: TOPIRAMATE
  25. TRAMADOL. [Concomitant]
     Active Substance: TRAMADOL
  26. MIACALCIN [Concomitant]
     Active Substance: CALCITONIN SALMON
  27. LANSOPRAZOLE. [Concomitant]
     Active Substance: LANSOPRAZOLE
  28. KLOR-CON [Concomitant]
     Active Substance: POTASSIUM CHLORIDE
  29. LANTUS [Concomitant]
     Active Substance: INSULIN GLARGINE
  30. AMBIEN [Concomitant]
     Active Substance: ZOLPIDEM TARTRATE
  31. BELCOMP-PB [Concomitant]
  32. DEPAKOTE [Concomitant]
     Active Substance: DIVALPROEX SODIUM
  33. PREMARIN [Concomitant]
     Active Substance: ESTROGENS, CONJUGATED
  34. PREVACID [Concomitant]
     Active Substance: LANSOPRAZOLE
  35. FIORICET [Concomitant]
     Active Substance: ACETAMINOPHEN\BUTALBITAL\CAFFEINE
  36. PREDNISONE. [Concomitant]
     Active Substance: PREDNISONE
  37. OMEPRAZOLE. [Concomitant]
     Active Substance: OMEPRAZOLE
  38. EFFEXOR XR [Concomitant]
     Active Substance: VENLAFAXINE HYDROCHLORIDE
  39. SOLU-MEDROL [Concomitant]
     Active Substance: METHYLPREDNISOLONE SODIUM SUCCINATE
  40. HYDROCO/APAP [Concomitant]
     Active Substance: ACETAMINOPHEN\HYDROCODONE
  41. AVONEX [Concomitant]
     Active Substance: INTERFERON BETA-1A
  42. LEVOXYL [Concomitant]
     Active Substance: LEVOTHYROXINE SODIUM
  43. FLUTICASONE. [Concomitant]
     Active Substance: FLUTICASONE
  44. LISINOPRIL. [Concomitant]
     Active Substance: LISINOPRIL
  45. AMLODIPINE [Concomitant]
     Active Substance: AMLODIPINE BESYLATE
  46. NEXIUM [Concomitant]
     Active Substance: ESOMEPRAZOLE MAGNESIUM
  47. LIPITOR [Suspect]
     Active Substance: ATORVASTATIN CALCIUM
  48. ABILIFY [Concomitant]
     Active Substance: ARIPIPRAZOLE
  49. TEMAZEPAM. [Concomitant]
     Active Substance: TEMAZEPAM
  50. SYNTHROID [Concomitant]
     Active Substance: LEVOTHYROXINE SODIUM
  51. ZANTAC [Concomitant]
     Active Substance: RANITIDINE HYDROCHLORIDE
  52. BACLOFEN. [Concomitant]
     Active Substance: BACLOFEN
  53. CYCLOBEWNZAPR [Concomitant]
  54. NEURONTIN [Concomitant]
     Active Substance: GABAPENTIN
  55. LYRICA [Concomitant]
     Active Substance: PREGABALIN
  56. TOPIRAMATE. [Concomitant]
     Active Substance: TOPIRAMATE
  57. CARBIDOPA. [Concomitant]
     Active Substance: CARBIDOPA
  58. CLARITIN -D [Concomitant]
  59. METOPRIOL TAR [Concomitant]

REACTIONS (1)
  - Urinary tract infection [None]

NARRATIVE: CASE EVENT DATE: 20170901
